FAERS Safety Report 18638302 (Version 1)
Quarter: 2020Q4

REPORT INFORMATION
  Report Type: Report from Study
  Country: US (occurrence: US)
  Receive Date: 20201218
  Receipt Date: 20201218
  Transmission Date: 20210114
  Serious: No
  Sender: FDA-Public Use
  Company Number: US-REGENERON PHARMACEUTICALS, INC.-2020-82014

PATIENT

DRUGS (5)
  1. EYLEA [Suspect]
     Active Substance: AFLIBERCEPT
     Dosage: LEFT EYE, EVERY 30 DAYS
     Route: 031
     Dates: start: 20200831, end: 20200831
  2. EYLEA [Suspect]
     Active Substance: AFLIBERCEPT
     Dosage: BOTH EYES, EVERY 2 WEEKS
     Route: 031
  3. EYLEA [Suspect]
     Active Substance: AFLIBERCEPT
     Dosage: RIGHT EYE, MONTHLY, EVERY 30 DAYS
     Route: 031
     Dates: start: 20200924, end: 20200924
  4. EYLEA [Suspect]
     Active Substance: AFLIBERCEPT
     Indication: DIABETIC RETINAL OEDEMA
     Dosage: BOTH EYES, EVERY 30 DAYS
     Route: 031
     Dates: start: 202006, end: 202006
  5. EYLEA [Suspect]
     Active Substance: AFLIBERCEPT
     Indication: DIABETIC RETINOPATHY
     Dosage: BOTH EYES, EVERY 30 DAYS
     Route: 031
     Dates: start: 2019

REACTIONS (6)
  - Stress [Unknown]
  - Blood pressure increased [Unknown]
  - Product dose omission issue [Unknown]
  - Eye disorder [Unknown]
  - Visual impairment [Unknown]
  - Blood glucose increased [Unknown]
